FAERS Safety Report 17183872 (Version 1)
Quarter: 2019Q4

REPORT INFORMATION
  Report Type: Spontaneous
  Country: US (occurrence: US)
  Receive Date: 20191220
  Receipt Date: 20191220
  Transmission Date: 20200122
  Serious: No
  Sender: FDA-Public Use
  Company Number: US-ALKERMES INC.-ALK-2019-006483

PATIENT
  Age: 23 Year
  Sex: Female

DRUGS (1)
  1. VIVITROL [Suspect]
     Active Substance: NALTREXONE
     Indication: DRUG DEPENDENCE
     Dosage: 380 MG, QMO
     Route: 030
     Dates: start: 201911

REACTIONS (7)
  - Depression [Not Recovered/Not Resolved]
  - Withdrawal syndrome [Unknown]
  - Fatigue [Not Recovered/Not Resolved]
  - Hypophagia [Not Recovered/Not Resolved]
  - Insomnia [Not Recovered/Not Resolved]
  - Apathy [Not Recovered/Not Resolved]
  - Flat affect [Not Recovered/Not Resolved]

NARRATIVE: CASE EVENT DATE: 201911
